FAERS Safety Report 9252422 (Version 2)
Quarter: 2013Q2

REPORT INFORMATION
  Report Type: Spontaneous
  Country: JP (occurrence: JP)
  Receive Date: 20130424
  Receipt Date: 20130610
  Transmission Date: 20140414
  Serious: Yes (Hospitalization)
  Sender: FDA-Public Use
  Company Number: JP-PFIZER INC-2013125173

PATIENT
  Age: 77 Year
  Sex: Male

DRUGS (8)
  1. AMLODIN [Suspect]
     Indication: HYPERTENSION
     Dosage: UNK
     Route: 048
  2. ONON [Interacting]
     Dosage: UNK
     Route: 048
     Dates: start: 20130413
  3. SALAGEN [Suspect]
     Dosage: UNK
     Route: 048
     Dates: start: 20130413
  4. THYRADIN [Concomitant]
     Indication: AUTOIMMUNE THYROIDITIS
     Dosage: UNK
     Route: 048
  5. MERCAZOLE [Concomitant]
     Indication: AUTOIMMUNE THYROIDITIS
     Dosage: UNK
     Route: 048
  6. GLUCOBAY [Concomitant]
     Indication: DIABETES MELLITUS
     Dosage: UNK
     Route: 048
  7. MYSLEE [Concomitant]
     Indication: INSOMNIA
     Dosage: UNK
     Route: 048
  8. HARNAL [Concomitant]
     Indication: BENIGN PROSTATIC HYPERPLASIA
     Dosage: UNK
     Route: 048

REACTIONS (6)
  - Drug interaction [Unknown]
  - Hypotension [Recovered/Resolved]
  - Anaphylactic reaction [Recovered/Resolved]
  - Cold sweat [Recovered/Resolved]
  - Generalised erythema [Recovered/Resolved]
  - Dyspnoea [Recovered/Resolved]
